FAERS Safety Report 10441494 (Version 4)
Quarter: 2014Q4

REPORT INFORMATION
  Report Type: Spontaneous
  Country: US (occurrence: US)
  Receive Date: 20140909
  Receipt Date: 20141010
  Transmission Date: 20150528
  Serious: Yes (Other)
  Sender: FDA-Public Use
  Company Number: US-DRREDDYS-USA/USA/14/0042880

PATIENT
  Sex: Male

DRUGS (2)
  1. OLANZAPINE FILM-COATED TABLET 20 MG [Suspect]
     Active Substance: OLANZAPINE
     Indication: PRODUCT USED FOR UNKNOWN INDICATION
     Route: 048
  2. OLANZAPINE TABLETS 2.5 MG, 5 MG, 7.5 MG, 10 MG [Suspect]
     Active Substance: OLANZAPINE
     Indication: PRODUCT USED FOR UNKNOWN INDICATION
     Route: 065

REACTIONS (9)
  - Nervousness [Unknown]
  - Dystonia [Unknown]
  - Anger [Unknown]
  - Anxiety [Unknown]
  - Product quality issue [Unknown]
  - Abdominal discomfort [Unknown]
  - Middle insomnia [Unknown]
  - Irritability [Unknown]
  - Epilepsy [Unknown]
